FAERS Safety Report 21939118 (Version 1)
Quarter: 2023Q1

REPORT INFORMATION
  Report Type: Report from Study
  Country: US (occurrence: US)
  Receive Date: 20230201
  Receipt Date: 20230201
  Transmission Date: 20230417
  Serious: Yes (Hospitalization, Other)
  Sender: FDA-Public Use
  Company Number: US-EXELIXIS-CABO-22054868

PATIENT
  Age: 73 Year
  Sex: Male
  Weight: 126.98 kg

DRUGS (4)
  1. CABOMETYX [Suspect]
     Active Substance: CABOZANTINIB S-MALATE
     Indication: Renal cancer
     Dosage: 40 MG, QD
     Route: 048
     Dates: start: 20220717, end: 20220920
  2. METOPROLOL SUCCINATE [Concomitant]
     Active Substance: METOPROLOL SUCCINATE
     Dosage: UNK
  3. DECADRON [Concomitant]
     Active Substance: DEXAMETHASONE
     Dosage: UNK
  4. LEVETIRACETAM [Concomitant]
     Active Substance: LEVETIRACETAM
     Dosage: UNK

REACTIONS (20)
  - Pulmonary embolism [Recovering/Resolving]
  - Thrombosis [Not Recovered/Not Resolved]
  - Pollakiuria [Unknown]
  - Increased tendency to bruise [Unknown]
  - Eye infection [Unknown]
  - Skin disorder [Recovering/Resolving]
  - Peripheral swelling [Recovering/Resolving]
  - Blood blister [Recovering/Resolving]
  - Hypersomnia [Unknown]
  - Hypogeusia [Recovering/Resolving]
  - Impaired healing [Recovering/Resolving]
  - Skin ulcer [Recovering/Resolving]
  - Rash [Unknown]
  - Dysphonia [Unknown]
  - Fatigue [Unknown]
  - Dry skin [Unknown]
  - Pain in extremity [Recovering/Resolving]
  - Arthralgia [Recovering/Resolving]
  - Stomatitis [Recovering/Resolving]
  - Constipation [Recovering/Resolving]

NARRATIVE: CASE EVENT DATE: 20220901
